FAERS Safety Report 6239390-6 (Version None)
Quarter: 2009Q2

REPORT INFORMATION
  Report Type: 
  Country: None (occurrence: None)
  Receive Date: 20090618
  Receipt Date: 20090618
  Transmission Date: 20091009
  Serious: Yes (Life-Threatening)
  Sender: FDA-Public Use
  Company Number: None

PATIENT
  Age: 64 Year
  Sex: Female
  Weight: 86.1834 kg

DRUGS (1)
  1. ZICAM GLUCONICUM GEL SWABS MATRIXX INITIATIVES, INC. [Suspect]
     Indication: NASOPHARYNGITIS
     Dosage: 1 SWAB 1-2 A DAY NASAL
     Route: 045
     Dates: start: 20081217, end: 20081221

REACTIONS (2)
  - ANOSMIA [None]
  - HYPOSMIA [None]
